FAERS Safety Report 5259621-9 (Version None)
Quarter: 2007Q1

REPORT INFORMATION
  Report Type: 
  Country: None (occurrence: None)
  Receive Date: 20070307
  Receipt Date: 20070307
  Transmission Date: 20070707
  Serious: Yes (Hospitalization)
  Sender: FDA-Public Use
  Company Number: None

PATIENT
  Age: 52 Year
  Sex: Male

DRUGS (5)
  1. VELCADE [Suspect]
     Indication: MANTLE CELL LYMPHOMA
     Dosage: IV
     Route: 042
     Dates: start: 20060731, end: 20070122
  2. CYCLOPHOSPHAMIDE [Suspect]
     Indication: MANTLE CELL LYMPHOMA
     Dates: start: 20060731, end: 20070122
  3. DOXORUBICIN HCL [Suspect]
     Indication: MANTLE CELL LYMPHOMA
     Dates: start: 20060731, end: 20070122
  4. VINCRISTINE [Suspect]
     Indication: MANTLE CELL LYMPHOMA
     Dates: start: 20060731, end: 20070122
  5. PREDNISONE [Suspect]
     Indication: MANTLE CELL LYMPHOMA
     Dates: start: 20060731, end: 20070122

REACTIONS (6)
  - FEBRILE NEUTROPENIA [None]
  - LOCALISED INFECTION [None]
  - MOUTH INJURY [None]
  - MUCOSAL INFLAMMATION [None]
  - OEDEMA [None]
  - SPLENOMEGALY [None]
